FAERS Safety Report 5817769-1 (Version None)
Quarter: 2008Q3

REPORT INFORMATION
  Report Type: 
  Country: None (occurrence: None)
  Receive Date: 20080722
  Receipt Date: 20080505
  Transmission Date: 20090109
  Serious: No
  Sender: FDA-Public Use
  Company Number: US-TYCO HEALTHCARE/MALLINCKRODT-T200800801

PATIENT

DRUGS (3)
  1. ULTRATAG [Suspect]
     Indication: RADIOISOTOPE SCAN
     Dates: start: 20080502, end: 20080502
  2. ULTRA-TECHNEKOW [Concomitant]
     Indication: RADIOISOTOPE SCAN
     Dates: start: 20080502, end: 20080502
  3. CHEMOTHERAPEUTICS NOS [Concomitant]

REACTIONS (1)
  - DRUG INEFFECTIVE [None]
